FAERS Safety Report 7382132-1 (Version None)
Quarter: 2011Q1

REPORT INFORMATION
  Report Type: 
  Country: None (occurrence: None)
  Receive Date: 20110329
  Receipt Date: 20110318
  Transmission Date: 20110831
  Serious: Yes (Other)
  Sender: FDA-Public Use
  Company Number: US-BAXTER-2011BH007110

PATIENT
  Sex: Female

DRUGS (2)
  1. REGLAN [Suspect]
     Route: 048
     Dates: start: 20060301, end: 20101001
  2. REGLAN [Suspect]
     Indication: PRODUCT USED FOR UNKNOWN INDICATION
     Route: 042
     Dates: start: 20060301, end: 20101001

REACTIONS (1)
  - CONVULSION [None]
